FAERS Safety Report 6660577-2 (Version None)
Quarter: 2010Q1

REPORT INFORMATION
  Report Type: 
  Country: None (occurrence: None)
  Receive Date: 20100331
  Receipt Date: 20100326
  Transmission Date: 20100710
  Serious: Yes (Death, Other)
  Sender: FDA-Public Use
  Company Number: IT-BRISTOL-MYERS SQUIBB COMPANY-15036981

PATIENT
  Age: 57 Year
  Sex: Male

DRUGS (7)
  1. VEPESID [Suspect]
     Indication: NON-HODGKIN'S LYMPHOMA
     Route: 042
     Dates: start: 20090618, end: 20090619
  2. VEPESID [Suspect]
     Indication: NON-HODGKIN'S LYMPHOMA
     Dosage: 18-19JUN09(IV) ON 19JUN2009 TAKEN 50 MG ORAL CAPS, 150 MG TOTAL VIA ORAL
     Route: 048
     Dates: start: 20090619
  3. CYCLOPHOSPHAMIDE [Suspect]
     Indication: NON-HODGKIN'S LYMPHOMA
     Dates: start: 20090511
  4. ETOPOSIDE [Suspect]
     Indication: NON-HODGKIN'S LYMPHOMA
     Dates: start: 20090511
  5. ENDOXAN BAXTER [Suspect]
     Indication: NON-HODGKIN'S LYMPHOMA
     Dosage: ENDOXAN BAXTER 1 G POWDER FOR INJECTABLE SOLUTION  EVERY 15 DAYS
     Route: 042
     Dates: start: 20090618
  6. DARBEPOETIN ALFA [Concomitant]
     Route: 058
  7. ALLOPURINOL [Concomitant]
     Route: 048

REACTIONS (3)
  - MALIGNANT NEOPLASM PROGRESSION [None]
  - NEUTROPENIA [None]
  - PNEUMONITIS [None]
